FAERS Safety Report 8587214-4 (Version None)
Quarter: 2012Q3

REPORT INFORMATION
  Report Type: 
  Country: None (occurrence: None)
  Receive Date: 20120810
  Receipt Date: 20110930
  Transmission Date: 20120928
  Serious: Yes (Other)
  Sender: FDA-Public Use
  Company Number: US-ASTRAZENECA-2011SE44796

PATIENT
  Age: 55 Year
  Sex: Female

DRUGS (2)
  1. ANASTROZOLE [Suspect]
     Route: 048
  2. GLUCOSAMINE [Concomitant]

REACTIONS (9)
  - PAIN [None]
  - MOBILITY DECREASED [None]
  - BACK PAIN [None]
  - BREAST CANCER [None]
  - DYSPNOEA [None]
  - ARTHRALGIA [None]
  - CRYING [None]
  - MUSCULOSKELETAL DISCOMFORT [None]
  - ARTHROPATHY [None]
